FAERS Safety Report 5655894-9 (Version None)
Quarter: 2008Q1

REPORT INFORMATION
  Report Type: 
  Country: None (occurrence: None)
  Receive Date: 20080307
  Receipt Date: 20080211
  Transmission Date: 20080703
  Serious: No
  Sender: FDA-Public Use
  Company Number: US-BOEHRINGER INGELHEIM GMBH, GERMANY-2008-BP-02163BP

PATIENT
  Age: 77 Year
  Sex: Male

DRUGS (1)
  1. ZANTAC 150 [Suspect]
     Indication: GASTROOESOPHAGEAL REFLUX DISEASE
     Dosage: 150 MG QD PRN
     Route: 048
     Dates: start: 20070201

REACTIONS (4)
  - LETHARGY [None]
  - RASH [None]
  - RASH PRURITIC [None]
  - SKIN BURNING SENSATION [None]
